FAERS Safety Report 5737993-6 (Version None)
Quarter: 2008Q2

REPORT INFORMATION
  Report Type: 
  Country: None (occurrence: None)
  Receive Date: 20080509
  Receipt Date: 20080411
  Transmission Date: 20081010
  Serious: Yes (Hospitalization, Other)
  Sender: FDA-Public Use
  Company Number: 001#1#2008-00232

PATIENT
  Age: 85 Year
  Sex: Female

DRUGS (3)
  1. NEUPRO [Suspect]
     Indication: PARKINSONISM
     Dosage: 2 MG/24H (2 MG/24H 1 IN 1 DAY(S), TRANSDERMAL
     Route: 062
     Dates: start: 20080402, end: 20080404
  2. NIFEDIPINE [Concomitant]
  3. ANAPRIL [Concomitant]

REACTIONS (3)
  - ATRIAL FIBRILLATION [None]
  - LOSS OF CONSCIOUSNESS [None]
  - SYNCOPE [None]
